FAERS Safety Report 4747871-7 (Version None)
Quarter: 2005Q3

REPORT INFORMATION
  Report Type: 
  Country: None (occurrence: None)
  Receive Date: 20050818
  Receipt Date: 20050607
  Transmission Date: 20060218
  Serious: Yes (Other)
  Sender: FDA-Public Use
  Company Number: NO-ROCHE-406905

PATIENT
  Age: 17 Year
  Sex: Male
  Weight: 80 kg

DRUGS (4)
  1. ROACCUTAN [Suspect]
     Indication: ACNE
     Route: 048
     Dates: start: 20050425, end: 20050427
  2. ROACCUTAN [Suspect]
     Route: 048
     Dates: start: 20050330
  3. ROACCUTAN [Suspect]
     Route: 048
     Dates: end: 20050604
  4. ALCOHOL [Interacting]
     Dosage: REPORTED BEER AND VODKA
     Route: 048

REACTIONS (10)
  - ALCOHOL INTERACTION [None]
  - ANGER [None]
  - ASTHENIA [None]
  - GASTROINTESTINAL MOTILITY DISORDER [None]
  - HALLUCINATION, AUDITORY [None]
  - HALLUCINATION, VISUAL [None]
  - HEADACHE [None]
  - IRRITABILITY [None]
  - KELOID SCAR [None]
  - SYNCOPE [None]
